FAERS Safety Report 9229053 (Version 1)
Quarter: 2013Q2

REPORT INFORMATION
  Report Type: Spontaneous
  Country: US (occurrence: US)
  Receive Date: 20130412
  Receipt Date: 20130412
  Transmission Date: 20140414
  Serious: No
  Sender: FDA-Public Use
  Company Number: US-B.I. PHARMACEUTICALS,INC./RIDGEFIELD-2013-BI-09927BP

PATIENT
  Age: 77 Year
  Sex: Female

DRUGS (12)
  1. PRADAXA [Suspect]
     Indication: ATRIAL FIBRILLATION
     Dosage: 300 MG
     Route: 048
     Dates: start: 20121230
  2. THYROXINE [Concomitant]
     Route: 048
  3. MONTELUKAST [Concomitant]
     Dosage: 10 MG
     Route: 048
  4. JANUVIA [Concomitant]
     Indication: DIABETES MELLITUS
     Route: 048
  5. ZETIA [Concomitant]
     Dosage: 10 MG
     Route: 048
  6. LOSARTAN [Concomitant]
     Indication: HYPERTENSION
     Dosage: 10 MG
     Route: 048
  7. DILTIAZEM [Concomitant]
     Route: 048
  8. BUSPAR [Concomitant]
     Dosage: 40 MG
     Route: 048
  9. NORTRIPTYLINE [Concomitant]
     Indication: DEPRESSION
     Dosage: 50 MG
     Route: 048
  10. HYDRALAZINE [Concomitant]
     Route: 048
  11. OMEPRAZOLE [Concomitant]
     Dosage: 20 MG
     Route: 048
  12. FUROSEMIDE [Concomitant]
     Route: 048

REACTIONS (1)
  - Feeling hot [Not Recovered/Not Resolved]
